FAERS Safety Report 6463330-8 (Version None)
Quarter: 2009Q4

REPORT INFORMATION
  Report Type: 
  Country: None (occurrence: None)
  Receive Date: 20091130
  Receipt Date: 20090706
  Transmission Date: 20100525
  Serious: Yes (Hospitalization)
  Sender: FDA-Public Use
  Company Number: US-AMGEN-QUU354580

PATIENT
  Sex: Male

DRUGS (2)
  1. ENBREL [Suspect]
     Indication: PSORIASIS
     Route: 058
     Dates: start: 20080411, end: 20090307
  2. METHOTREXATE [Concomitant]
     Route: 048
     Dates: start: 20061201

REACTIONS (1)
  - DEVICE RELATED INFECTION [None]
